FAERS Safety Report 25387347 (Version 2)
Quarter: 2025Q2

REPORT INFORMATION
  Report Type: Spontaneous
  Country: US (occurrence: US)
  Receive Date: 20250602
  Receipt Date: 20250618
  Transmission Date: 20250717
  Serious: Yes (Other)
  Sender: UCB
  Company Number: US-UCBSA-2025032127

PATIENT

DRUGS (6)
  1. NEUPRO [Suspect]
     Active Substance: ROTIGOTINE
     Indication: Parkinson^s disease
     Dates: start: 202401, end: 202412
  2. NEUPRO [Suspect]
     Active Substance: ROTIGOTINE
     Dates: start: 202412, end: 202412
  3. SINEMET [Concomitant]
     Active Substance: CARBIDOPA\LEVODOPA
     Indication: Product used for unknown indication
  4. SINEMET [Concomitant]
     Active Substance: CARBIDOPA\LEVODOPA
  5. RYTARY [Concomitant]
     Active Substance: CARBIDOPA\LEVODOPA
     Indication: Parkinson^s disease
     Dates: start: 202412
  6. RYTARY [Concomitant]
     Active Substance: CARBIDOPA\LEVODOPA

REACTIONS (5)
  - Deep brain stimulation [Unknown]
  - Movement disorder [Unknown]
  - Quality of life decreased [Unknown]
  - Sleep deficit [Unknown]
  - Gambling disorder [Unknown]

NARRATIVE: CASE EVENT DATE: 20240101
